FAERS Safety Report 4405151-3 (Version None)
Quarter: 2004Q3

REPORT INFORMATION
  Report Type: 
  Country: None (occurrence: None)
  Receive Date: 20040722
  Receipt Date: 20040722
  Transmission Date: 20050211
  Serious: Yes (Hospitalization)
  Sender: FDA-Public Use
  Company Number: None

PATIENT
  Sex: Male
  Weight: 88.7 kg

DRUGS (14)
  1. IMATIMIB MESYLATE [Suspect]
     Indication: GLIOBLASTOMA MULTIFORME
     Dosage: 500 MG PO BID
     Route: 048
     Dates: start: 20040423, end: 20040513
  2. HYDROXYUREA [Suspect]
     Indication: GLIOBLASTOMA MULTIFORME
     Dosage: 500 MG PO BID
     Route: 048
     Dates: start: 20040423, end: 20040513
  3. TRILEPTAL [Concomitant]
  4. LOVENOX [Concomitant]
  5. RITALIN [Concomitant]
  6. PREVACID [Concomitant]
  7. NYSTATIN [Concomitant]
  8. DIFLUCAN [Concomitant]
  9. REGULAR INSULIN [Concomitant]
  10. METFORMIN HCL [Concomitant]
  11. DECADRON [Concomitant]
  12. TYLENOL [Concomitant]
  13. PROVENTIL [Concomitant]
  14. NPH INSULIN [Concomitant]

REACTIONS (7)
  - ASTHENIA [None]
  - CANDIDIASIS [None]
  - DEHYDRATION [None]
  - DIABETES MELLITUS [None]
  - FATIGUE [None]
  - GLIOBLASTOMA MULTIFORME [None]
  - HYPERTENSION [None]
